FAERS Safety Report 8249814-0 (Version None)
Quarter: 2012Q1

REPORT INFORMATION
  Report Type: 
  Country: None (occurrence: None)
  Receive Date: 20120316
  Receipt Date: 20110324
  Transmission Date: 20120608
  Serious: Yes (Other)
  Sender: FDA-Public Use
  Company Number: PHHY2011US25310

PATIENT
  Sex: Male

DRUGS (3)
  1. HTCZ [Concomitant]
  2. TEKTURNA [Suspect]
     Indication: HYPERTENSION
  3. COZAAR [Concomitant]

REACTIONS (5)
  - EYELID OEDEMA [None]
  - BLOOD PRESSURE INCREASED [None]
  - PERIPHERAL COLDNESS [None]
  - VISUAL IMPAIRMENT [None]
  - HEADACHE [None]
